FAERS Safety Report 10268834 (Version 2)
Quarter: 2014Q2

REPORT INFORMATION
  Report Type: Spontaneous
  Country: JP (occurrence: JP)
  Receive Date: 20140630
  Receipt Date: 20140630
  Transmission Date: 20141212
  Serious: Yes (Death, Life-Threatening)
  Sender: FDA-Public Use
  Company Number: JP-NAPPMUNDI-GBR-2014-0018838

PATIENT
  Age: 87 Year
  Sex: Female

DRUGS (2)
  1. NORSPAN 10 MG [Suspect]
     Indication: PAIN
     Dosage: 10 MCG, Q1H
     Route: 062
     Dates: start: 20140528, end: 20140611
  2. NORSPAN 10 MG [Suspect]
     Dosage: 5 MCG, Q1H
     Route: 062
     Dates: start: 20140521, end: 20140527

REACTIONS (4)
  - Death [Fatal]
  - Renal failure [Unknown]
  - Pneumonia [Unknown]
  - Respiratory depression [Unknown]
